FAERS Safety Report 25925459 (Version 1)
Quarter: 2025Q4

REPORT INFORMATION
  Report Type: Spontaneous
  Country: GB (occurrence: GB)
  Receive Date: 20251015
  Receipt Date: 20251015
  Transmission Date: 20260117
  Serious: Yes (Life-Threatening, Hospitalization, Other)
  Sender: ELI LILLY AND COMPANY
  Company Number: None

PATIENT
  Age: 61 Year
  Sex: Male
  Weight: 108 kg

DRUGS (1)
  1. MOUNJARO [Suspect]
     Active Substance: TIRZEPATIDE
     Indication: Weight control
     Dosage: UNK UNK, UNKNOWN
     Route: 065
     Dates: start: 20241104

REACTIONS (3)
  - Cholelithiasis [Not Recovered/Not Resolved]
  - Neutropenic sepsis [Unknown]
  - Cholecystitis [Unknown]

NARRATIVE: CASE EVENT DATE: 20251002
